FAERS Safety Report 8274281-0 (Version None)
Quarter: 2012Q2

REPORT INFORMATION
  Report Type: 
  Country: None (occurrence: None)
  Receive Date: 20120411
  Receipt Date: 20120411
  Transmission Date: 20120825
  Serious: Yes (Death, Life-Threatening, Hospitalization)
  Sender: FDA-Public Use
  Company Number: None

PATIENT
  Age: 65 Year
  Sex: Male
  Weight: 106 kg

DRUGS (2)
  1. CEPHALEXIN [Concomitant]
  2. DABIGATRAN [Suspect]
     Indication: ATRIAL FIBRILLATION

REACTIONS (27)
  - ENCEPHALOPATHY [None]
  - CARDIAC ARREST [None]
  - INTERNATIONAL NORMALISED RATIO INCREASED [None]
  - LACERATION [None]
  - TORSADE DE POINTES [None]
  - SKIN ULCER [None]
  - LOSS OF CONSCIOUSNESS [None]
  - MALNUTRITION [None]
  - HAEMODYNAMIC INSTABILITY [None]
  - GENERAL PHYSICAL HEALTH DETERIORATION [None]
  - ARRHYTHMIA [None]
  - RENAL FAILURE ACUTE [None]
  - BLOOD ALBUMIN DECREASED [None]
  - HYPOTENSION [None]
  - TACHYCARDIA [None]
  - HAEMORRHAGE [None]
  - ASTHENIA [None]
  - BLOOD ELECTROLYTES ABNORMAL [None]
  - HAEMODIALYSIS [None]
  - COAGULOPATHY [None]
  - HYPERTENSION [None]
  - SOMNOLENCE [None]
  - FALL [None]
  - BRADYCARDIA [None]
  - RENAL TUBULAR NECROSIS [None]
  - GASTROINTESTINAL HAEMORRHAGE [None]
  - HEAD INJURY [None]
